FAERS Safety Report 19974063 (Version 1)
Quarter: 2021Q4

REPORT INFORMATION
  Report Type: Spontaneous
  Country: US (occurrence: US)
  Receive Date: 20211018
  Receipt Date: 20211018
  Transmission Date: 20220303
  Serious: Yes (Hospitalization)
  Sender: FDA-Public Use
  Company Number: None

PATIENT
  Sex: Female

DRUGS (31)
  1. HUMIRA [Suspect]
     Active Substance: ADALIMUMAB
     Indication: Crohn^s disease
     Route: 058
     Dates: start: 20210309
  2. AZITHROMYCIN ANHYDROUS [Concomitant]
     Active Substance: AZITHROMYCIN ANHYDROUS
  3. BENZONATATE [Concomitant]
     Active Substance: BENZONATATE
  4. BREO ELLIPTA [Concomitant]
     Active Substance: FLUTICASONE FUROATE\VILANTEROL TRIFENATATE
  5. CARVEDILOL [Concomitant]
     Active Substance: CARVEDILOL
  6. CEFDINIR [Concomitant]
     Active Substance: CEFDINIR
  7. CETIRIZINE [Concomitant]
     Active Substance: CETIRIZINE HYDROCHLORIDE
  8. ENALAPRIL [Concomitant]
     Active Substance: ENALAPRIL
  9. CHLORHEXIDINE GLUCONATE [Concomitant]
     Active Substance: CHLORHEXIDINE GLUCONATE
  10. CLINDAMYCIN [Concomitant]
     Active Substance: CLINDAMYCIN
  11. CYANOCOBALAMIN [Concomitant]
     Active Substance: CYANOCOBALAMIN
  12. FUROSEMIDE [Concomitant]
     Active Substance: FUROSEMIDE
  13. GABAPENTIN [Concomitant]
     Active Substance: GABAPENTIN
  14. HYDROCORTISO CRE [Concomitant]
  15. HYDROXYZINE PAMOATE [Concomitant]
     Active Substance: HYDROXYZINE PAMOATE
  16. IPRATOPRIUM/SOL ALBUTER [Concomitant]
  17. KETOCONAZOLE CRE [Concomitant]
  18. LEVOTHYROXINE [Concomitant]
     Active Substance: LEVOTHYROXINE
  19. LOSARTAN POTASSIUM [Concomitant]
     Active Substance: LOSARTAN POTASSIUM
  20. METHYLPREDNISOLONE [Concomitant]
     Active Substance: METHYLPREDNISOLONE
  21. MONTELUKAST [Concomitant]
     Active Substance: MONTELUKAST SODIUM
  22. OMEPRAZOLE [Concomitant]
     Active Substance: OMEPRAZOLE
  23. POT CHLORIDE ER [Concomitant]
  24. PREDNISONE [Concomitant]
     Active Substance: PREDNISONE
  25. QUETIAPINE [Concomitant]
     Active Substance: QUETIAPINE
  26. SERTRALINE [Concomitant]
     Active Substance: SERTRALINE HYDROCHLORIDE
  27. SIMVASTATIN [Concomitant]
     Active Substance: SIMVASTATIN
  28. SULFAMETHOXAZOLE\TRIMETHOPRIM [Concomitant]
     Active Substance: SULFAMETHOXAZOLE\TRIMETHOPRIM
  29. SPIRONOLACTONE [Concomitant]
     Active Substance: SPIRONOLACTONE
  30. SUCRALFATE [Concomitant]
     Active Substance: SUCRALFATE
  31. XARELTO [Concomitant]
     Active Substance: RIVAROXABAN

REACTIONS (2)
  - COVID-19 [None]
  - Intentional dose omission [None]
